FAERS Safety Report 8469766-8 (Version None)
Quarter: 2012Q2

REPORT INFORMATION
  Report Type: 
  Country: None (occurrence: None)
  Receive Date: 20120626
  Receipt Date: 20120619
  Transmission Date: 20120825
  Serious: No
  Sender: FDA-Public Use
  Company Number: US-PFIZER INC-2012148683

PATIENT
  Sex: Female

DRUGS (16)
  1. ARTHROTEC [Suspect]
     Dosage: UNK
     Route: 048
  2. SULFAMETHOXAZOLE [Suspect]
     Dosage: UNK
  3. ULTRAM [Suspect]
     Dosage: UNK
  4. LIPITOR [Suspect]
     Dosage: UNK
     Route: 048
  5. LORTAB [Suspect]
     Dosage: UNK
  6. PRAVACHOL [Suspect]
     Dosage: UNK
  7. OXACILLIN SODIUM [Suspect]
     Dosage: UNK
  8. PCE [Suspect]
     Dosage: UNK
  9. ZETIA [Suspect]
     Dosage: UNK
  10. AMBIEN CR [Suspect]
     Dosage: UNK
  11. AMOXICILLIN [Suspect]
     Dosage: 0.5 UNK, 1X/DAY
  12. BIAXIN [Suspect]
     Dosage: UNK
  13. CEFZIL [Suspect]
     Dosage: UNK
  14. ZOCOR [Suspect]
     Dosage: UNK
  15. LIVALO [Suspect]
     Dosage: UNK
  16. PROVIGIL [Suspect]
     Dosage: UNK

REACTIONS (1)
  - DRUG HYPERSENSITIVITY [None]
